FAERS Safety Report 5313324-0 (Version None)
Quarter: 2007Q2

REPORT INFORMATION
  Report Type: 
  Country: None (occurrence: None)
  Receive Date: 20070501
  Receipt Date: 20070420
  Transmission Date: 20071010
  Serious: Yes (Hospitalization, Other)
  Sender: FDA-Public Use
  Company Number: PHHO2007BR06275

PATIENT
  Age: 82 Year
  Sex: Female
  Weight: 51 kg

DRUGS (4)
  1. EXELON [Suspect]
     Indication: DEMENTIA ALZHEIMER'S TYPE
     Dosage: 1.5 MG, BID
     Route: 048
     Dates: start: 20070201
  2. LOSARTAN POSTASSIUM [Concomitant]
     Indication: HYPERTENSION
  3. BETAHISTINE [Concomitant]
     Indication: LABYRINTHITIS
  4. ZELMAC / HTF 919A [Suspect]
     Indication: GASTRIC DISORDER

REACTIONS (8)
  - APATHY [None]
  - DECREASED APPETITE [None]
  - DEPRESSION [None]
  - DIZZINESS [None]
  - LABYRINTHITIS [None]
  - NAUSEA [None]
  - VOMITING [None]
  - WEIGHT INCREASED [None]
